FAERS Safety Report 18926613 (Version 7)
Quarter: 2021Q3

REPORT INFORMATION
  Report Type: Spontaneous
  Country: US (occurrence: US)
  Receive Date: 20210223
  Receipt Date: 20210913
  Transmission Date: 20211014
  Serious: No
  Sender: FDA-Public Use
  Company Number: US-GLAXOSMITHKLINE-US2021AMR049630

PATIENT
  Age: 58 Year
  Sex: Female

DRUGS (8)
  1. BLOOD TRANSFUSION [Concomitant]
     Active Substance: HUMAN RED BLOOD CELL
     Dosage: UNK
     Dates: start: 20210731
  2. ZEJULA [Suspect]
     Active Substance: NIRAPARIB
     Indication: OVARIAN CANCER
     Dosage: 100 MG, QD
     Route: 048
     Dates: start: 20210210
  3. ZEJULA [Suspect]
     Active Substance: NIRAPARIB
     Dosage: 100 MG, QD
     Route: 048
  4. ZEJULA [Suspect]
     Active Substance: NIRAPARIB
     Dosage: 200 MG, QD
     Route: 048
  5. ZEJULA [Suspect]
     Active Substance: NIRAPARIB
     Dosage: 200 MG, QD
     Route: 048
  6. ZEJULA [Suspect]
     Active Substance: NIRAPARIB
     Dosage: 200 MG, QD
     Route: 048
  7. ZEJULA [Suspect]
     Active Substance: NIRAPARIB
     Dosage: 200 MG, QD
     Route: 048
  8. BLOOD TRANSFUSION [Concomitant]
     Active Substance: HUMAN RED BLOOD CELL
     Indication: PRODUCT USED FOR UNKNOWN INDICATION
     Dosage: UNK
     Dates: start: 202106

REACTIONS (14)
  - Anxiety [Unknown]
  - Dyspnoea [Unknown]
  - Constipation [Unknown]
  - Blood pressure increased [Recovering/Resolving]
  - Asthenia [Unknown]
  - Carbohydrate antigen 125 increased [Unknown]
  - Dizziness [Unknown]
  - Nervousness [Unknown]
  - Abdominal pain [Unknown]
  - Product dose omission issue [Unknown]
  - Haemoglobin decreased [Unknown]
  - Headache [Not Recovered/Not Resolved]
  - Off label use [Unknown]
  - Palpitations [Unknown]

NARRATIVE: CASE EVENT DATE: 20210712
